FAERS Safety Report 7437334-2 (Version None)
Quarter: 2011Q2

REPORT INFORMATION
  Report Type: 
  Country: None (occurrence: None)
  Receive Date: 20110426
  Receipt Date: 20110413
  Transmission Date: 20111010
  Serious: Yes (Hospitalization)
  Sender: FDA-Public Use
  Company Number: JP-SANOFI-AVENTIS-2011SA024930

PATIENT
  Age: 56 Year
  Sex: Male

DRUGS (7)
  1. AVASTIN [Concomitant]
     Dosage: ROUTE: DR
  2. THERAPEUTIC RADIOPHARMACEUTICALS [Concomitant]
     Route: 065
  3. OXALIPLATIN [Suspect]
     Route: 065
  4. FLUOROURACIL [Concomitant]
     Indication: RECTAL CANCER
     Dosage: BOLUS
     Route: 040
  5. OXALIPLATIN [Suspect]
     Indication: RECTAL CANCER
     Dosage: ROUTE: DR
     Route: 065
  6. FLUOROURACIL [Concomitant]
     Dosage: CONTINUOUS INFUSION (DR)
  7. CALCIUM LEVOFOLINATE [Concomitant]
     Indication: RECTAL CANCER
     Dosage: ROUTE: DR
     Route: 065

REACTIONS (3)
  - SMALL INTESTINAL PERFORATION [None]
  - PYREXIA [None]
  - PERINEAL PAIN [None]
